FAERS Safety Report 4269784-X (Version None)
Quarter: 2004Q1

REPORT INFORMATION
  Report Type: 
  Country: None (occurrence: None)
  Receive Date: 20040113
  Receipt Date: 20040109
  Transmission Date: 20041129
  Serious: Yes (Hospitalization)
  Sender: FDA-Public Use
  Company Number: WAES 0401USA00675

PATIENT
  Age: 68 Year
  Sex: Female

DRUGS (1)
  1. STROMECTOL [Suspect]
     Route: 048
     Dates: start: 20030628, end: 20030628

REACTIONS (4)
  - ABDOMINAL DISTENSION [None]
  - OEDEMA PERIPHERAL [None]
  - PITTING OEDEMA [None]
  - PRURITUS GENERALISED [None]
